FAERS Safety Report 6051807-9 (Version None)
Quarter: 2009Q1

REPORT INFORMATION
  Report Type: 
  Country: None (occurrence: None)
  Receive Date: 20090126
  Receipt Date: 20090113
  Transmission Date: 20090719
  Serious: Yes (Other)
  Sender: FDA-Public Use
  Company Number: BR-PFIZER INC-2008078108

PATIENT

DRUGS (4)
  1. CHAMPIX [Suspect]
     Indication: TOBACCO USER
     Dosage: 0.5 MG, 2X/DAY
     Route: 048
     Dates: start: 20080909
  2. LOSARTAN POTASSIUM [Concomitant]
  3. AMIODARONE HCL [Concomitant]
  4. ALPRAZOLAM [Concomitant]

REACTIONS (2)
  - HYPERTENSION [None]
  - MEDICATION ERROR [None]
